FAERS Safety Report 9674474 (Version 2)
Quarter: 2013Q4

REPORT INFORMATION
  Report Type: Report from Study
  Country: FR (occurrence: FR)
  Receive Date: 20131107
  Receipt Date: 20131113
  Transmission Date: 20140711
  Serious: Yes (Hospitalization)
  Sender: FDA-Public Use
  Company Number: FR-AMGEN-FRACT2013077541

PATIENT
  Age: 37 Year
  Sex: Male

DRUGS (6)
  1. ETANERCEPT [Suspect]
     Indication: PSORIASIS
     Dosage: 50 MG, 2X/WEEK
     Route: 058
     Dates: start: 20130709, end: 20130905
  2. INEXIUM                            /01479302/ [Concomitant]
     Dosage: 40 MG, UNK
  3. BEESWAX [Concomitant]
     Indication: PSORIASIS
     Dosage: UNK
     Dates: start: 20130726
  4. CETYL ESTERS WAX [Concomitant]
     Indication: PSORIASIS
     Dosage: UNK
     Dates: start: 20130726
  5. PARAFFIN, LIQUID [Concomitant]
     Indication: PSORIASIS
     Dosage: UNK
     Dates: start: 20130726
  6. SODIUM BORATE [Concomitant]
     Indication: PSORIASIS
     Dosage: UNK
     Dates: start: 20130726

REACTIONS (1)
  - Eczema [Recovered/Resolved]
